FAERS Safety Report 19512258 (Version 4)
Quarter: 2021Q3

REPORT INFORMATION
  Report Type: Spontaneous
  Country: JP (occurrence: JP)
  Receive Date: 20210709
  Receipt Date: 20210922
  Transmission Date: 20211014
  Serious: Yes (Death)
  Sender: FDA-Public Use
  Company Number: JP-ELI_LILLY_AND_COMPANY-JP202107002845

PATIENT
  Age: 6 Year
  Sex: Female
  Weight: 12 kg

DRUGS (18)
  1. UPTRAVI [Suspect]
     Active Substance: SELEXIPAG
     Indication: PULMONARY ARTERIAL HYPERTENSION
     Dosage: 0.05 MG, BID
     Route: 048
     Dates: start: 20180516, end: 20180530
  2. UPTRAVI [Suspect]
     Active Substance: SELEXIPAG
     Dosage: 0.45 MG, BID
     Route: 048
     Dates: start: 20180713, end: 20180719
  3. ALDACTONE A [Concomitant]
     Active Substance: SPIRONOLACTONE
     Indication: PRODUCT USED FOR UNKNOWN INDICATION
     Dosage: 8 MG, UNKNOWN
     Route: 065
  4. UPTRAVI [Suspect]
     Active Substance: SELEXIPAG
     Dosage: 0.55 MG, BID
     Route: 048
     Dates: start: 20180720, end: 20191001
  5. OPSUMIT [Concomitant]
     Active Substance: MACITENTAN
     Indication: PULMONARY ARTERIAL HYPERTENSION
     Dosage: 2 MG, UNKNOWN
     Route: 065
  6. LASIX [Concomitant]
     Active Substance: FUROSEMIDE
     Indication: PRODUCT USED FOR UNKNOWN INDICATION
     Dosage: 8 MG, UNKNOWN
     Route: 065
  7. UPTRAVI [Suspect]
     Active Substance: SELEXIPAG
     Dosage: 0.8 MG, BID
     Route: 048
     Dates: start: 20191025
  8. THYRADIN [Concomitant]
     Active Substance: LEVOTHYROXINE
     Indication: HYPOTHYROIDISM
     Dosage: 9 UG, UNKNOWN
     Route: 065
  9. ADCIRCA [Suspect]
     Active Substance: TADALAFIL
     Indication: PULMONARY ARTERIAL HYPERTENSION
     Dosage: 24 MG, DAILY
     Route: 065
  10. UPTRAVI [Suspect]
     Active Substance: SELEXIPAG
     Indication: PULMONARY HYPERTENSION
     Dosage: 0.1 MG, BID
     Route: 048
     Dates: start: 20180531, end: 20180607
  11. UPTRAVI [Suspect]
     Active Substance: SELEXIPAG
     Dosage: 0.15 MG, BID
     Route: 048
     Dates: start: 20180608, end: 20180621
  12. UPTRAVI [Suspect]
     Active Substance: SELEXIPAG
     Dosage: 0.25 MG, BID
     Route: 048
     Dates: start: 20180629, end: 20180705
  13. ADCIRCA [Suspect]
     Active Substance: TADALAFIL
     Indication: PULMONARY HYPERTENSION
  14. UPTRAVI [Suspect]
     Active Substance: SELEXIPAG
     Dosage: 1.3 MG, BID
     Route: 048
     Dates: start: 20191001
  15. BISOPROLOL FUMARATE. [Concomitant]
     Active Substance: BISOPROLOL FUMARATE
     Indication: PRODUCT USED FOR UNKNOWN INDICATION
     Dosage: 1.2 MG, UNKNOWN
     Route: 065
     Dates: end: 20190304
  16. UPTRAVI [Suspect]
     Active Substance: SELEXIPAG
     Dosage: 0.2 MG, BID
     Route: 048
     Dates: start: 20180622, end: 20180628
  17. UPTRAVI [Suspect]
     Active Substance: SELEXIPAG
     Dosage: 0.35 MG, BID
     Route: 048
     Dates: start: 20180706, end: 20180712
  18. UPTRAVI [Suspect]
     Active Substance: SELEXIPAG
     Dosage: 0.75 MG, BID
     Route: 048
     Dates: start: 20191018, end: 20191024

REACTIONS (2)
  - Off label use [Unknown]
  - Cardiac failure acute [Fatal]

NARRATIVE: CASE EVENT DATE: 20210611
